FAERS Safety Report 10441169 (Version 5)
Quarter: 2015Q1

REPORT INFORMATION
  Report Type: Spontaneous
  Country: JP (occurrence: JP)
  Receive Date: 20140909
  Receipt Date: 20150304
  Transmission Date: 20150720
  Serious: Yes (Death)
  Sender: FDA-Public Use
  Company Number: JP-BAUSCH-SYM-2014-24363

PATIENT
  Age: 72 Year
  Sex: Female

DRUGS (8)
  1. SERENACE [Suspect]
     Active Substance: HALOPERIDOL
     Route: 048
     Dates: start: 20130604, end: 20130617
  2. SERENACE [Suspect]
     Active Substance: HALOPERIDOL
     Indication: HUNTINGTON^S DISEASE
     Route: 048
     Dates: start: 20130305, end: 20130527
  3. CHOREAZINE TABLETS 12.5 MG [Suspect]
     Active Substance: TETRABENAZINE
     Route: 048
     Dates: start: 20130717, end: 20140721
  4. CHOREAZINE TABLETS 12.5 MG [Suspect]
     Active Substance: TETRABENAZINE
     Route: 048
     Dates: start: 20130508, end: 20130521
  5. CHOREAZINE TABLETS 12.5 MG [Suspect]
     Active Substance: TETRABENAZINE
     Route: 048
     Dates: start: 20130522, end: 20130716
  6. SERENACE [Suspect]
     Active Substance: HALOPERIDOL
     Route: 048
     Dates: start: 20130618, end: 20140611
  7. SERENACE [Suspect]
     Active Substance: HALOPERIDOL
     Route: 048
     Dates: start: 20140612, end: 20140721
  8. CHOREAZINE TABLETS 12.5 MG [Suspect]
     Active Substance: TETRABENAZINE
     Indication: HUNTINGTON^S DISEASE
     Route: 048
     Dates: start: 20130424, end: 20130507

REACTIONS (2)
  - Muscular weakness [Recovered/Resolved]
  - Huntington^s disease [Fatal]

NARRATIVE: CASE EVENT DATE: 20130514
